FAERS Safety Report 10109902 (Version 3)
Quarter: 2014Q2

REPORT INFORMATION
  Report Type: Report from Study
  Country: US (occurrence: US)
  Receive Date: 20140425
  Receipt Date: 20140616
  Transmission Date: 20141212
  Serious: Yes (Other)
  Sender: FDA-Public Use
  Company Number: PHEH2014US006312

PATIENT
  Age: 23 Year
  Sex: Female
  Weight: 92.52 kg

DRUGS (14)
  1. GILENYA [Suspect]
     Indication: MULTIPLE SCLEROSIS
     Dosage: 0.5 MG, QD
     Route: 048
     Dates: start: 20130731
  2. GABAPENTIN [Concomitant]
     Indication: NEUROPATHY PERIPHERAL
     Dosage: 100 MG, TID
     Route: 048
     Dates: start: 201306
  3. VICODIN [Concomitant]
     Indication: PAIN
     Dosage: 1 DF, PRN
     Route: 048
     Dates: start: 201306
  4. CARBAMAZEPINE [Concomitant]
  5. HYDROCODONE [Concomitant]
  6. LIDOCAINE [Concomitant]
  7. TRAMADOL [Concomitant]
  8. IBUPROFEN [Concomitant]
  9. FLUCONAZOLE [Concomitant]
  10. TINIDAZOLE [Concomitant]
  11. ALPRAZOLAM [Concomitant]
  12. CALCIUM CITRATE [Concomitant]
  13. PAMELOR [Concomitant]
  14. VITAMIN D [Concomitant]

REACTIONS (2)
  - Pleurisy [Recovered/Resolved]
  - Herpes zoster [Recovered/Resolved]
